FAERS Safety Report 26093651 (Version 1)
Quarter: 2025Q4

REPORT INFORMATION
  Report Type: Spontaneous
  Country: US (occurrence: US)
  Receive Date: 20251126
  Receipt Date: 20251126
  Transmission Date: 20260118
  Serious: Yes (Other)
  Sender: PHARMACEUTICAL ASSOCIATES
  Company Number: US-PAIPHARMA-2025-US-038627

PATIENT
  Age: 11 Year
  Sex: Female
  Weight: 30.39 kg

DRUGS (5)
  1. ETHOSUXIMIDE [Suspect]
     Active Substance: ETHOSUXIMIDE
     Indication: Seizure
     Dosage: 12 ML PO, TWICE DAILY
     Route: 048
     Dates: start: 20250814
  2. KEPPRA [Concomitant]
     Active Substance: LEVETIRACETAM
  3. ONFI [Concomitant]
     Active Substance: CLOBAZAM
  4. CLONAZEPAM [Concomitant]
     Active Substance: CLONAZEPAM
  5. LAMICTAL [Concomitant]
     Active Substance: LAMOTRIGINE

REACTIONS (7)
  - Seizure [Unknown]
  - Somnolence [Not Recovered/Not Resolved]
  - Mydriasis [Not Recovered/Not Resolved]
  - Drug ineffective [Unknown]
  - Irritability [Not Recovered/Not Resolved]
  - Product dose omission issue [Recovered/Resolved]
  - Brain fog [Not Recovered/Not Resolved]

NARRATIVE: CASE EVENT DATE: 20250814
